FAERS Safety Report 15659083 (Version 1)
Quarter: 2018Q4

REPORT INFORMATION
  Report Type: Report from Study
  Country: US (occurrence: US)
  Receive Date: 20181127
  Receipt Date: 20181127
  Transmission Date: 20190205
  Serious: Yes (Hospitalization, Other)
  Sender: FDA-Public Use
  Company Number: US-SA-2018SA317522

PATIENT
  Age: 73 Year
  Sex: Male

DRUGS (1)
  1. INSULIN GLARGINE [Suspect]
     Active Substance: INSULIN GLARGINE
     Indication: TYPE 2 DIABETES MELLITUS
     Dosage: 20 U, QD
     Route: 058
     Dates: start: 2015

REACTIONS (13)
  - Malaise [Not Recovered/Not Resolved]
  - Ascites [Unknown]
  - Hepatic failure [Not Recovered/Not Resolved]
  - Asthenia [Not Recovered/Not Resolved]
  - Haemorrhage [Unknown]
  - Haemoglobin decreased [Unknown]
  - Non-cirrhotic portal hypertension [Unknown]
  - Cholecystectomy [Unknown]
  - Abdominal hernia [Not Recovered/Not Resolved]
  - Hydrocele operation [Unknown]
  - Varices oesophageal [Unknown]
  - Blood glucose increased [Not Recovered/Not Resolved]
  - Glycosylated haemoglobin increased [Not Recovered/Not Resolved]

NARRATIVE: CASE EVENT DATE: 201704
